FAERS Safety Report 8618709-2 (Version None)
Quarter: 2012Q3

REPORT INFORMATION
  Report Type: 
  Country: None (occurrence: None)
  Receive Date: 20120824
  Receipt Date: 20120817
  Transmission Date: 20120928
  Serious: Yes (Hospitalization)
  Sender: FDA-Public Use
  Company Number: RO-JNJFOC-20120602208

PATIENT
  Sex: Male
  Weight: 66 kg

DRUGS (5)
  1. ABIRATERONE ACETATE [Suspect]
     Route: 048
     Dates: start: 20120313, end: 20120510
  2. ABIRATERONE ACETATE [Suspect]
     Route: 048
     Dates: start: 20120512, end: 20120521
  3. PREDNISONE TAB [Suspect]
     Indication: PROSTATE CANCER METASTATIC
     Route: 048
     Dates: start: 20111216, end: 20120521
  4. ABIRATERONE ACETATE [Suspect]
     Indication: PROSTATE CANCER METASTATIC
     Route: 048
     Dates: start: 20111216, end: 20120311
  5. METOCLOPRAMIDE [Concomitant]
     Route: 048

REACTIONS (2)
  - ANAEMIA [None]
  - DEHYDRATION [None]
